FAERS Safety Report 4364780-6 (Version None)
Quarter: 2004Q2

REPORT INFORMATION
  Report Type: 
  Country: None (occurrence: None)
  Receive Date: 20040526
  Receipt Date: 20040507
  Transmission Date: 20050107
  Serious: Yes (Hospitalization)
  Sender: FDA-Public Use
  Company Number: PHBS2004JP06191

PATIENT
  Age: 56 Year
  Sex: Male
  Weight: 72 kg

DRUGS (9)
  1. GLEEVEC [Suspect]
     Indication: CHRONIC MYELOID LEUKAEMIA
     Dosage: 400 MG, BID
     Route: 048
     Dates: start: 20040422, end: 20040423
  2. ONCOVIN [Suspect]
     Indication: CHRONIC MYELOID LEUKAEMIA
     Dosage: 2 MG/DAY
     Route: 042
     Dates: start: 20040414, end: 20040414
  3. ONCOVIN [Suspect]
     Dosage: 2 MG/DAY
     Route: 042
     Dates: start: 20040421, end: 20040421
  4. ADRIACIN [Suspect]
     Indication: CHRONIC MYELOID LEUKAEMIA
     Dosage: 36 MG/DAY
     Route: 042
     Dates: start: 20040414, end: 20040415
  5. ADRIACIN [Suspect]
     Dosage: 36 MG/DAY
     Route: 042
     Dates: start: 20040421, end: 20040421
  6. ENDOXAN [Suspect]
     Indication: CHRONIC MYELOID LEUKAEMIA
     Dosage: 1000 MG/DAY
     Route: 042
     Dates: start: 20040414, end: 20040414
  7. PREDONINE [Concomitant]
     Indication: CHRONIC MYELOID LEUKAEMIA
     Dosage: 70 MG/DAY
     Route: 048
     Dates: start: 20040414, end: 20040423
  8. PREDONINE [Concomitant]
     Dosage: 70 MG/DAY
     Route: 042
  9. PREDONINE [Concomitant]
     Dosage: 35 MG/DAY
     Route: 042
     Dates: end: 20040424

REACTIONS (7)
  - BACK PAIN [None]
  - CHILLS [None]
  - ENDOTOXIC SHOCK [None]
  - HYPOTENSION [None]
  - OXYGEN SATURATION DECREASED [None]
  - PYREXIA [None]
  - VISUAL ACUITY REDUCED [None]
